FAERS Safety Report 13822690 (Version 2)
Quarter: 2017Q3

REPORT INFORMATION
  Report Type: Report from Study
  Country: US (occurrence: US)
  Receive Date: 20170801
  Receipt Date: 20170818
  Transmission Date: 20171127
  Serious: Yes (Other)
  Sender: FDA-Public Use
  Company Number: US-ACTELION-A-US2017-157216

PATIENT
  Age: 72 Year
  Sex: Male

DRUGS (1)
  1. VALCHLOR [Suspect]
     Active Substance: MECHLORETHAMINE
     Indication: MYCOSIS FUNGOIDES
     Dosage: APPLY DAILY
     Route: 061
     Dates: start: 20170419, end: 20170809

REACTIONS (7)
  - Dry skin [Unknown]
  - Mycosis fungoides [Unknown]
  - Skin hyperpigmentation [Unknown]
  - Therapy non-responder [Unknown]
  - Thrombosis [Unknown]
  - Diabetes mellitus [Unknown]
  - Disease progression [Unknown]
